FAERS Safety Report 17536264 (Version 3)
Quarter: 2021Q2

REPORT INFORMATION
  Report Type: Spontaneous
  Country: US (occurrence: US)
  Receive Date: 20200313
  Receipt Date: 20210630
  Transmission Date: 20210716
  Serious: Yes (Hospitalization, Other)
  Sender: FDA-Public Use
  Company Number: US-GILEAD-2020-0454512

PATIENT
  Age: 43 Year
  Sex: Male
  Weight: 77.1 kg

DRUGS (19)
  1. TRUVADA [Suspect]
     Active Substance: EMTRICITABINE\TENOFOVIR DISOPROXIL FUMARATE
     Dosage: UNK
     Route: 048
     Dates: start: 20090716, end: 2015
  2. VIREAD [Suspect]
     Active Substance: TENOFOVIR DISOPROXIL FUMARATE
     Indication: PRODUCT USED FOR UNKNOWN INDICATION
     Route: 065
  3. ACETAMINOPHEN. [Concomitant]
     Active Substance: ACETAMINOPHEN
  4. ZERIT [Concomitant]
     Active Substance: STAVUDINE
  5. TRUVADA [Suspect]
     Active Substance: EMTRICITABINE\TENOFOVIR DISOPROXIL FUMARATE
     Indication: HIV INFECTION
     Dosage: UNK
     Route: 048
     Dates: start: 20060629, end: 20150314
  6. PRAVASTATIN. [Concomitant]
     Active Substance: PRAVASTATIN
  7. ISENTRESS [Concomitant]
     Active Substance: RALTEGRAVIR POTASSIUM
  8. PANTOPRAZOLE [Concomitant]
     Active Substance: PANTOPRAZOLE
  9. PREZISTA [Concomitant]
     Active Substance: DARUNAVIR ETHANOLATE
  10. ACICLOVIR [Concomitant]
     Active Substance: ACYCLOVIR
  11. VIRACEPT [Concomitant]
     Active Substance: NELFINAVIR MESYLATE
  12. VIRAMUNE [Concomitant]
     Active Substance: NEVIRAPINE
  13. ASPIRIN [ACETYLSALICYLIC ACID] [Concomitant]
     Active Substance: ASPIRIN
  14. NORVIR [Concomitant]
     Active Substance: RITONAVIR
  15. SUSTIVA [Concomitant]
     Active Substance: EFAVIRENZ
  16. TRUVADA [Suspect]
     Active Substance: EMTRICITABINE\TENOFOVIR DISOPROXIL FUMARATE
     Dosage: UNK
     Route: 048
     Dates: start: 201301, end: 201503
  17. INVIRASE [Concomitant]
     Active Substance: SAQUINAVIR MESYLATE
  18. TYBOST [Concomitant]
     Active Substance: COBICISTAT
  19. TRIUMEQ [Concomitant]
     Active Substance: ABACAVIR SULFATE\DOLUTEGRAVIR SODIUM\LAMIVUDINE

REACTIONS (13)
  - Renal failure [Not Recovered/Not Resolved]
  - Anhedonia [Unknown]
  - Dysstasia [Unknown]
  - Osteoarthritis [Unknown]
  - Emotional distress [Unknown]
  - Chronic kidney disease [Not Recovered/Not Resolved]
  - Hip arthroplasty [Unknown]
  - Anxiety [Unknown]
  - Pneumonia [Unknown]
  - Pain [Unknown]
  - Gait disturbance [Unknown]
  - Osteonecrosis [Not Recovered/Not Resolved]
  - Economic problem [Unknown]

NARRATIVE: CASE EVENT DATE: 20110620
